FAERS Safety Report 9492122 (Version 1)
Quarter: 2013Q3

REPORT INFORMATION
  Report Type: Spontaneous
  Country: GB (occurrence: GB)
  Receive Date: 20130830
  Receipt Date: 20130830
  Transmission Date: 20140515
  Serious: Yes (Other)
  Sender: FDA-Public Use
  Company Number: GB-JNJFOC-20130809091

PATIENT
  Age: 60 Year
  Sex: Male
  Weight: 101.6 kg

DRUGS (3)
  1. CETIRIZINE HYDROCHLORIDE [Suspect]
     Route: 048
  2. CETIRIZINE HYDROCHLORIDE [Suspect]
     Indication: ARTHROPOD BITE
     Route: 048
  3. VENLAFAXINE HYDROCHLORIDE [Interacting]
     Indication: DEPRESSION
     Route: 048

REACTIONS (4)
  - Drug interaction [Unknown]
  - Disturbance in attention [Recovered/Resolved]
  - Aggression [Recovered/Resolved]
  - Confusional state [Recovered/Resolved]
